FAERS Safety Report 25532767 (Version 7)
Quarter: 2025Q4

REPORT INFORMATION
  Report Type: Report from Study
  Country: EU (occurrence: EU)
  Receive Date: 20250709
  Receipt Date: 20251204
  Transmission Date: 20260118
  Serious: Yes (Death, Life-Threatening, Hospitalization, Other)
  Sender: ABBVIE
  Company Number: EU-JNJFOC-20250533219

PATIENT
  Age: 69 Year
  Sex: Female
  Weight: 62 kg

DRUGS (26)
  1. IBRUTINIB [Suspect]
     Active Substance: IBRUTINIB
     Indication: Chronic lymphocytic leukaemia
     Route: 048
     Dates: start: 20250220, end: 20250319
  2. IBRUTINIB [Suspect]
     Active Substance: IBRUTINIB
     Indication: Chronic lymphocytic leukaemia
     Dosage: FREQ:QD, DOSE FORM: CAPSULE
     Route: 048
     Dates: start: 20250320, end: 20250416
  3. IBRUTINIB [Suspect]
     Active Substance: IBRUTINIB
     Indication: Chronic lymphocytic leukaemia
     Dosage: FREQ:QD, DOSE FORM: CAPSULE
     Route: 048
     Dates: start: 20250417, end: 20250514
  4. IBRUTINIB [Suspect]
     Active Substance: IBRUTINIB
     Indication: Chronic lymphocytic leukaemia
     Dosage: LAST ADMINISTERED ON 28-MAY-2025 FREQ:QD, DOSE FORM: CAPSULE
     Route: 048
     Dates: start: 20250515, end: 20250528
  5. IBRUTINIB [Suspect]
     Active Substance: IBRUTINIB
     Indication: Chronic lymphocytic leukaemia
     Dosage: FREQ: QD, DOSE FORM: CAPSULE
     Route: 048
     Dates: start: 20250529, end: 20250603
  6. IBRUTINIB [Suspect]
     Active Substance: IBRUTINIB
     Indication: Chronic lymphocytic leukaemia
     Dosage: LAST ADMIN DATE 2025, DOSE FORM: CAPSULE
     Route: 048
     Dates: start: 20250604
  7. VENETOCLAX [Suspect]
     Active Substance: VENETOCLAX
     Indication: Chronic lymphocytic leukaemia
     Dosage: FOA: TABLET
     Route: 048
     Dates: start: 20250528, end: 20250529
  8. VENETOCLAX [Suspect]
     Active Substance: VENETOCLAX
     Indication: Chronic lymphocytic leukaemia
     Dosage: FOA: TABLET
     Route: 048
     Dates: start: 20250521, end: 20250527
  9. VENETOCLAX [Suspect]
     Active Substance: VENETOCLAX
     Indication: Chronic lymphocytic leukaemia
     Dosage: LAST ADMIN DATE 2025
     Route: 048
     Dates: start: 20250530
  10. TELMISARTAN [Concomitant]
     Active Substance: TELMISARTAN
     Indication: Product used for unknown indication
     Dosage: DAILY
     Route: 048
     Dates: start: 20150101
  11. ACYCLOVIR [Concomitant]
     Active Substance: ACYCLOVIR
     Indication: Product used for unknown indication
     Dosage: TWICE DAILY
     Route: 048
     Dates: start: 20250220, end: 20250603
  12. PANTOPRAZOLE SODIUM [Concomitant]
     Active Substance: PANTOPRAZOLE SODIUM
     Indication: Prophylaxis
     Dosage: DAILY
     Route: 048
  13. PANTOPRAZOLE SODIUM [Concomitant]
     Active Substance: PANTOPRAZOLE SODIUM
     Indication: Prophylaxis
     Dosage: DAILY
     Route: 048
  14. GRANULOCYTE COLONY-STIMULATING FACTOR NOS [Concomitant]
     Active Substance: GRANULOCYTE COLONY-STIMULATING FACTOR NOS
     Indication: Febrile neutropenia
     Dosage: 30 UI
     Route: 058
     Dates: start: 20250614
  15. BACTRIM [Concomitant]
     Active Substance: SULFAMETHOXAZOLE\TRIMETHOPRIM
     Indication: Product used for unknown indication
     Dosage: OTHER
     Route: 048
     Dates: start: 20250220, end: 20250603
  16. ASPIRIN [Concomitant]
     Active Substance: ASPIRIN
     Indication: Product used for unknown indication
     Route: 048
     Dates: start: 20150101, end: 20250609
  17. ACETAMINOPHEN [Concomitant]
     Active Substance: ACETAMINOPHEN
     Indication: Prophylaxis
     Dosage: DAILY
     Route: 048
     Dates: start: 20250609
  18. ROMIPLOSTIM [Concomitant]
     Active Substance: ROMIPLOSTIM
     Indication: Adverse event
     Dosage: WEEKLY
     Route: 058
     Dates: start: 20250609
  19. FILGRASTIM [Concomitant]
     Active Substance: FILGRASTIM
     Indication: Adverse event
     Dosage: DAILY
     Route: 058
     Dates: start: 20250609
  20. PREDNISONE [Concomitant]
     Active Substance: PREDNISONE
     Indication: Adverse event
     Dosage: TWICE DAILY
     Route: 048
     Dates: start: 20250603
  21. ELTROMBOPAG [Concomitant]
     Active Substance: ELTROMBOPAG
     Indication: Adverse event
     Dosage: DAILY
     Route: 048
     Dates: start: 20250603, end: 20250608
  22. PANTOPRAZOLE [Concomitant]
     Active Substance: PANTOPRAZOLE
     Indication: Adverse event
     Dosage: DAILY
     Route: 048
     Dates: end: 20250608
  23. PANTOPRAZOLE [Concomitant]
     Active Substance: PANTOPRAZOLE
     Indication: Adverse event
     Dosage: TWICE DAILY
     Route: 048
     Dates: start: 20250609
  24. SIMVASTATIN [Concomitant]
     Active Substance: SIMVASTATIN
     Indication: Product used for unknown indication
     Dosage: DAILY
     Route: 048
     Dates: start: 20250609, end: 20250609
  25. SIMVASTATIN [Concomitant]
     Active Substance: SIMVASTATIN
     Indication: Product used for unknown indication
     Dosage: DAILY
     Route: 048
  26. ALLOPURINOL [Concomitant]
     Active Substance: ALLOPURINOL
     Indication: Product used for unknown indication
     Dosage: DAILY
     Route: 048
     Dates: start: 20250220, end: 20250609

REACTIONS (9)
  - Transfusion-related acute lung injury [Fatal]
  - Anaemia [Not Recovered/Not Resolved]
  - Thrombocytopenia [Not Recovered/Not Resolved]
  - Pneumonia [Not Recovered/Not Resolved]
  - Dyspepsia [Unknown]
  - Neutropenia [Not Recovered/Not Resolved]
  - Back pain [Unknown]
  - Respiratory failure [Not Recovered/Not Resolved]
  - Hypoxic-ischaemic encephalopathy [Fatal]

NARRATIVE: CASE EVENT DATE: 20250516
